FAERS Safety Report 18702115 (Version 1)
Quarter: 2021Q1

REPORT INFORMATION
  Report Type: Spontaneous
  Country: US (occurrence: US)
  Receive Date: 20210105
  Receipt Date: 20210105
  Transmission Date: 20210419
  Serious: Yes (Hospitalization)
  Sender: FDA-Public Use
  Company Number: US-VISTAPHARM, INC.-VER202012-002254

PATIENT
  Age: 79 Year
  Sex: Female

DRUGS (1)
  1. HYDROCODONE AND ACETAMINOPHEN [Suspect]
     Active Substance: ACETAMINOPHEN\HYDROCODONE
     Indication: PAIN
     Dosage: 650 MG (AT CONSULTATION 14.9 G OF ACETAMINOPHEN WERE ADMINISTERED TO THE PATIENT OVER 7 DAYS)

REACTIONS (1)
  - Metabolic acidosis [Recovered/Resolved]
